FAERS Safety Report 15511801 (Version 1)
Quarter: 2018Q4

REPORT INFORMATION
  Report Type: Spontaneous
  Country: US (occurrence: US)
  Receive Date: 20181010
  Receipt Date: 20181010
  Transmission Date: 20190205
  Serious: Yes (Hospitalization)
  Sender: FDA-Public Use
  Company Number: None

PATIENT
  Age: 62 Year
  Sex: Male

DRUGS (1)
  1. ERLEADA [Suspect]
     Active Substance: APALUTAMIDE
     Dates: start: 20180705

REACTIONS (3)
  - Diverticulitis [None]
  - Weight decreased [None]
  - Product dose omission [None]

NARRATIVE: CASE EVENT DATE: 20180908
